FAERS Safety Report 14212041 (Version 2)
Quarter: 2017Q4

REPORT INFORMATION
  Report Type: Spontaneous
  Country: CO (occurrence: CO)
  Receive Date: 20171122
  Receipt Date: 20171204
  Transmission Date: 20180321
  Serious: Yes (Other)
  Sender: FDA-Public Use
  Company Number: CO-ENDO PHARMACEUTICALS INC-2017-006322

PATIENT
  Sex: Male

DRUGS (1)
  1. AVEED [Suspect]
     Active Substance: TESTOSTERONE UNDECANOATE
     Indication: PRODUCT USED FOR UNKNOWN INDICATION
     Dosage: 1 DF, Q1MON
     Route: 030
     Dates: start: 201310, end: 201312

REACTIONS (6)
  - Overdose [Recovered/Resolved]
  - Testicular atrophy [Unknown]
  - Libido disorder [Not Recovered/Not Resolved]
  - Cerebral ataxia [Not Recovered/Not Resolved]
  - Off label use [Recovered/Resolved]
  - Erectile dysfunction [Not Recovered/Not Resolved]
